FAERS Safety Report 12712142 (Version 1)
Quarter: 2016Q3

REPORT INFORMATION
  Report Type: Spontaneous
  Country: US (occurrence: US)
  Receive Date: 20160902
  Receipt Date: 20160902
  Transmission Date: 20161109
  Serious: No
  Sender: FDA-Public Use
  Company Number: US-PFIZER INC-2016388355

PATIENT
  Age: 61 Year
  Sex: Female
  Weight: 88.44 kg

DRUGS (1)
  1. EMBEDA [Suspect]
     Active Substance: MORPHINE SULFATE\NALTREXONE HYDROCHLORIDE
     Indication: PAIN
     Dosage: 1 DF, 2X/DAY (MORPHINE SULFATE: 50MG , NALTREXONE HYDROCHLORIDE: 2MG)
     Route: 048
     Dates: start: 20160808

REACTIONS (4)
  - Condition aggravated [Unknown]
  - Drug ineffective [Unknown]
  - Contraindicated product administered [Unknown]
  - Dyspnoea [Unknown]
